FAERS Safety Report 8212174-5 (Version None)
Quarter: 2012Q1

REPORT INFORMATION
  Report Type: 
  Country: None (occurrence: None)
  Receive Date: 20120315
  Receipt Date: 20120312
  Transmission Date: 20120608
  Serious: Yes (Other)
  Sender: FDA-Public Use
  Company Number: CA-ROCHE-760773

PATIENT
  Sex: Male

DRUGS (8)
  1. ACTEMRA [Suspect]
     Indication: RHEUMATOID ARTHRITIS
     Dosage: FORM: INFUSION
     Route: 042
     Dates: start: 20101222, end: 20120221
  2. FOLIC ACID [Concomitant]
  3. VITAMIN D [Concomitant]
  4. PLAQUENIL [Concomitant]
  5. METHOTREXATE [Concomitant]
  6. ASCORBIC ACID [Concomitant]
  7. ETODOLAC [Concomitant]
  8. TYLENOL [Concomitant]
     Dosage: DRUG: TYLENOL EXTRA STRENGTH, FREQUENCY: PRN

REACTIONS (4)
  - MEMORY IMPAIRMENT [None]
  - SPEECH DISORDER [None]
  - FATIGUE [None]
  - PAIN [None]
